FAERS Safety Report 6557581-1 (Version None)
Quarter: 2010Q1

REPORT INFORMATION
  Report Type: 
  Country: None (occurrence: None)
  Receive Date: 20100129
  Receipt Date: 20100120
  Transmission Date: 20100710
  Serious: Yes (Other)
  Sender: FDA-Public Use
  Company Number: ES-JNJFOC-20090708982

PATIENT
  Age: 34 Year
  Sex: Female
  Weight: 46 kg

DRUGS (10)
  1. REMICADE [Suspect]
     Indication: ANKYLOSING SPONDYLITIS
     Dosage: INITIAL INFUSION
     Route: 042
  2. REMICADE [Suspect]
     Route: 042
  3. REMICADE [Suspect]
     Dosage: SECOND INFUSION
     Route: 042
  4. REMICADE [Suspect]
     Route: 042
  5. REMICADE [Suspect]
     Dosage: THIRD INFUSION
     Route: 042
  6. METHOTREXATE [Concomitant]
  7. ANTI-INFLAMMATORY [Concomitant]
  8. ACFOL [Concomitant]
  9. HUMIRA [Concomitant]
     Dosage: 6 TOTAL DOSES
  10. ETANERCEPT [Concomitant]

REACTIONS (8)
  - ABDOMINAL PAIN LOWER [None]
  - AMYOTROPHIC LATERAL SCLEROSIS [None]
  - APPENDICITIS [None]
  - ARTHRALGIA [None]
  - DIARRHOEA [None]
  - DYSPEPSIA [None]
  - PYREXIA [None]
  - TENOSYNOVITIS STENOSANS [None]
